FAERS Safety Report 7676822-0 (Version None)
Quarter: 2011Q3

REPORT INFORMATION
  Report Type: 
  Country: None (occurrence: None)
  Receive Date: 20110811
  Receipt Date: 20110802
  Transmission Date: 20111222
  Serious: Yes (Death)
  Sender: FDA-Public Use
  Company Number: CA-JNJFOC-20110702118

PATIENT
  Sex: Female
  Weight: 73 kg

DRUGS (3)
  1. IMURAN [Concomitant]
  2. REMICADE [Suspect]
     Indication: COLITIS ULCERATIVE
     Route: 042
     Dates: start: 20110622
  3. PREDNISONE [Concomitant]

REACTIONS (1)
  - DEATH [None]
